FAERS Safety Report 8537904-4 (Version None)
Quarter: 2012Q3

REPORT INFORMATION
  Report Type: 
  Country: None (occurrence: None)
  Receive Date: 20120725
  Receipt Date: 20120718
  Transmission Date: 20120928
  Serious: Yes (Other)
  Sender: FDA-Public Use
  Company Number: US-GLAXOSMITHKLINE-A0984937A

PATIENT
  Age: 55 Year
  Sex: Female

DRUGS (6)
  1. SIMETHICONE [Concomitant]
  2. TYLENOL [Concomitant]
  3. ARIXTRA [Suspect]
     Indication: PULMONARY EMBOLISM
     Dosage: 2.5MG UNKNOWN
     Route: 058
     Dates: start: 20120510, end: 20120517
  4. COUMADIN [Concomitant]
  5. DULCOLAX [Concomitant]
  6. METAMUCIL-2 [Concomitant]

REACTIONS (5)
  - CONFUSIONAL STATE [None]
  - HEADACHE [None]
  - DYSARTHRIA [None]
  - HEMIPARESIS [None]
  - GAIT DISTURBANCE [None]
